FAERS Safety Report 5239209-6 (Version None)
Quarter: 2007Q1

REPORT INFORMATION
  Report Type: 
  Country: None (occurrence: None)
  Receive Date: 20070212
  Receipt Date: 20070201
  Transmission Date: 20070707
  Serious: Yes (Hospitalization)
  Sender: FDA-Public Use
  Company Number: 236100

PATIENT
  Age: 50 Year
  Sex: Male
  Weight: 75.5 kg

DRUGS (9)
  1. MABTHERA (RITUXIMAB) CONC FOR SOLUTION FOR INFUSION [Suspect]
     Indication: DRUG USE FOR UNKNOWN INDICATION
     Dosage: INTRAVENOUS
     Route: 042
     Dates: start: 20060808
  2. METHOTREXATE [Suspect]
     Indication: DRUG USE FOR UNKNOWN INDICATION
     Dosage: 9.4 G, INTRAVENOUS
     Route: 042
     Dates: start: 20060809
  3. VINCRISTINE SULFATE [Suspect]
     Indication: DRUG USE FOR UNKNOWN INDICATION
     Dosage: 2 MG, INTRAVENOUS
     Route: 042
     Dates: start: 20060809
  4. MESNA [Suspect]
     Indication: DRUG USE FOR UNKNOWN INDICATION
     Dosage: 1, IV BOLUS
     Route: 040
  5. ATACAND [Suspect]
     Indication: DRUG USE FOR UNKNOWN INDICATION
     Dosage: 4 MG, ORAL
     Route: 048
  6. NEXIUM [Suspect]
     Indication: DRUG USE FOR UNKNOWN INDICATION
     Dosage: 20 MG
  7. DILANTIN [Suspect]
     Indication: DRUG USE FOR UNKNOWN INDICATION
     Dosage: 400 MG
  8. IFOSFAMIDE [Suspect]
     Indication: LYMPHOMA
     Dosage: 1.5 G, QD, INTRAVENOUS
     Route: 042
     Dates: start: 20060810, end: 20060813
  9. SODIUM BICARB (SODIUM BICARBONATE) [Concomitant]

REACTIONS (2)
  - HAEMODIALYSIS [None]
  - RENAL FAILURE ACUTE [None]
